FAERS Safety Report 8113015-7 (Version None)
Quarter: 2012Q1

REPORT INFORMATION
  Report Type: 
  Country: None (occurrence: None)
  Receive Date: 20120203
  Receipt Date: 20120123
  Transmission Date: 20120608
  Serious: Yes (Hospitalization, Other)
  Sender: FDA-Public Use
  Company Number: US-ELI_LILLY_AND_COMPANY-US201112005226

PATIENT
  Sex: Female

DRUGS (3)
  1. FORTEO [Suspect]
     Indication: OSTEOPOROSIS
     Dosage: 20 UG, QD
  2. INSULIN [Concomitant]
     Dosage: UNK
  3. ANALGESICS [Concomitant]
     Dosage: UNK

REACTIONS (3)
  - HIP FRACTURE [None]
  - FALL [None]
  - FEMUR FRACTURE [None]
